FAERS Safety Report 20751543 (Version 1)
Quarter: 2022Q2

REPORT INFORMATION
  Report Type: Spontaneous
  Country: CA (occurrence: CA)
  Receive Date: 20220426
  Receipt Date: 20220426
  Transmission Date: 20220721
  Serious: Yes (Hospitalization, Other)
  Sender: FDA-Public Use
  Company Number: CA-TEVA-2022-CA-2029391

PATIENT
  Age: 32 Year
  Sex: Female

DRUGS (1)
  1. PANTOPRAZOLE [Suspect]
     Active Substance: PANTOPRAZOLE
     Indication: Gastrooesophageal reflux disease
     Dosage: 40 MILLIGRAM DAILY;
     Route: 048

REACTIONS (12)
  - Anaemia [Unknown]
  - Decreased appetite [Unknown]
  - Decreased appetite [Unknown]
  - Dyspnoea [Unknown]
  - Impaired work ability [Unknown]
  - Nausea [Unknown]
  - Renal failure [Unknown]
  - Urine abnormality [Unknown]
  - Vision blurred [Unknown]
  - Vomiting [Unknown]
  - Weight decreased [Unknown]
  - Drug ineffective [Unknown]
